FAERS Safety Report 7912545-8 (Version None)
Quarter: 2011Q4

REPORT INFORMATION
  Report Type: 
  Country: None (occurrence: None)
  Receive Date: 20111114
  Receipt Date: 20111110
  Transmission Date: 20120403
  Serious: Yes (Other)
  Sender: FDA-Public Use
  Company Number: US-PFIZER INC-2011276217

PATIENT
  Sex: Female
  Weight: 145 kg

DRUGS (7)
  1. BUSPAR [Concomitant]
     Indication: ANXIETY
     Dosage: UNK
  2. PRISTIQ [Concomitant]
     Indication: DEPRESSION
     Dosage: UNK
  3. BENZTROPEINE [Concomitant]
     Dosage: UNK
  4. CHANTIX [Suspect]
     Indication: SMOKING CESSATION THERAPY
     Dosage: 0.5 MG, 1X/DAY
     Route: 048
     Dates: start: 20111001, end: 20111001
  5. WELLBUTRIN [Concomitant]
     Indication: DEPRESSION
     Dosage: UNK
  6. RISPERIDONE [Concomitant]
     Indication: PSYCHOTIC DISORDER
     Dosage: UNK
  7. CHANTIX [Suspect]
     Dosage: 1 MG, 2X/DAY
     Route: 048
     Dates: start: 20111001

REACTIONS (3)
  - NIGHTMARE [None]
  - SUICIDAL IDEATION [None]
  - PSYCHOTIC DISORDER [None]
